FAERS Safety Report 25748002 (Version 1)
Quarter: 2025Q3

REPORT INFORMATION
  Report Type: Report from Study
  Country: MX (occurrence: MX)
  Receive Date: 20250901
  Receipt Date: 20250901
  Transmission Date: 20251020
  Serious: Yes (Other)
  Sender: ABBVIE
  Company Number: MX-ABBOTT-2025A-1401894

PATIENT
  Sex: Male
  Weight: 75 kg

DRUGS (2)
  1. EPIVAL [Suspect]
     Active Substance: DIVALPROEX SODIUM
     Indication: Seizure
     Dosage: DOSE AND FREQUENCY OF 2 PILLS DAILY, WITH MODIFICATIONS OF 3 PILLS DAILY.
     Route: 048
  2. EPIVAL [Suspect]
     Active Substance: DIVALPROEX SODIUM
     Indication: Seizure
     Route: 048

REACTIONS (9)
  - Cerebrovascular accident [Unknown]
  - Neurological symptom [Unknown]
  - General physical condition abnormal [Unknown]
  - Ageusia [Unknown]
  - Mental impairment [Unknown]
  - Dyspnoea [Unknown]
  - Type 2 diabetes mellitus [Not Recovered/Not Resolved]
  - Anosmia [Unknown]
  - Deafness unilateral [Unknown]

NARRATIVE: CASE EVENT DATE: 20230101
